FAERS Safety Report 9386376 (Version 1)
Quarter: 2013Q3

REPORT INFORMATION
  Report Type: Spontaneous
  Country: US (occurrence: US)
  Receive Date: 20130708
  Receipt Date: 20130708
  Transmission Date: 20140515
  Serious: Yes (Hospitalization)
  Sender: FDA-Public Use
  Company Number: US-BIOGENIDEC-2013BI040992

PATIENT
  Age: 21 Year
  Sex: Female

DRUGS (3)
  1. AVONEX [Suspect]
     Indication: MULTIPLE SCLEROSIS
     Route: 030
     Dates: start: 201210
  2. AMITRIPTYLINE [Concomitant]
     Indication: SLEEP DISORDER
  3. FLEXERIL [Concomitant]

REACTIONS (3)
  - Convulsion [Recovered/Resolved]
  - Drug hypersensitivity [Unknown]
  - Multiple sclerosis relapse [Unknown]
